FAERS Safety Report 23957548 (Version 1)
Quarter: 2024Q2

REPORT INFORMATION
  Report Type: Spontaneous
  Country: AU (occurrence: AU)
  Receive Date: 20240610
  Receipt Date: 20240610
  Transmission Date: 20240716
  Serious: Yes (Hospitalization, Other)
  Sender: FDA-Public Use
  Company Number: AU-RECKITT BENCKISER HEALTHCARE INT LIMITED-RB-088016-2024

PATIENT
  Sex: Male

DRUGS (1)
  1. IBUPROFEN [Suspect]
     Active Substance: IBUPROFEN
     Indication: Pain prophylaxis
     Dosage: UNK
     Route: 065

REACTIONS (4)
  - Renal failure [Not Recovered/Not Resolved]
  - Body temperature increased [Not Recovered/Not Resolved]
  - Heat stroke [Not Recovered/Not Resolved]
  - Fall [Not Recovered/Not Resolved]
